FAERS Safety Report 10255232 (Version 1)
Quarter: 2014Q2

REPORT INFORMATION
  Report Type: Spontaneous
  Country: CH (occurrence: CH)
  Receive Date: 20140624
  Receipt Date: 20140624
  Transmission Date: 20141212
  Serious: Yes (Hospitalization)
  Sender: FDA-Public Use
  Company Number: CH-BAYER-2014-091045

PATIENT
  Age: 77 Year
  Sex: Female

DRUGS (6)
  1. ASPIRIN CARDIO [Suspect]
     Dosage: 100 MG, QD
     Route: 048
     Dates: end: 20140419
  2. DEANXIT [Concomitant]
  3. ROHYPNOL [Concomitant]
  4. DIOVAN [Concomitant]
  5. TENORMIN [Concomitant]
  6. STILNOX [Concomitant]

REACTIONS (2)
  - Transient ischaemic attack [Recovered/Resolved]
  - Subarachnoid haemorrhage [Recovered/Resolved]
